FAERS Safety Report 6160096-6 (Version None)
Quarter: 2009Q2

REPORT INFORMATION
  Report Type: 
  Country: None (occurrence: None)
  Receive Date: 20090420
  Receipt Date: 20090409
  Transmission Date: 20091009
  Serious: Yes (Hospitalization)
  Sender: FDA-Public Use
  Company Number: FR-AVENTIS-200911459FR

PATIENT
  Age: 39 Year
  Sex: Male

DRUGS (2)
  1. CLAFORAN [Suspect]
     Indication: MENINGITIS
     Dates: start: 20081205, end: 20090101
  2. FOSFOMYCINE [Suspect]
     Indication: MENINGITIS
     Dates: start: 20081205, end: 20081230

REACTIONS (2)
  - AGRANULOCYTOSIS [None]
  - DERMATITIS EXFOLIATIVE [None]
